FAERS Safety Report 4359875-7 (Version None)
Quarter: 2004Q2

REPORT INFORMATION
  Report Type: 
  Country: None (occurrence: None)
  Receive Date: 20040513
  Receipt Date: 20040504
  Transmission Date: 20050107
  Serious: Yes (Hospitalization)
  Sender: FDA-Public Use
  Company Number: 2004AC00097

PATIENT
  Age: 29 Year
  Sex: Female

DRUGS (3)
  1. OMEPRAZOLE [Suspect]
     Dosage: 20 MG DAILY PO
     Route: 048
  2. BECLOMETHASONE DIPROPIONATE [Suspect]
  3. ALBUTEROL SULFATE [Suspect]
     Indication: ASTHMA

REACTIONS (1)
  - GASTROENTERITIS EOSINOPHILIC [None]
